FAERS Safety Report 7801465-5 (Version None)
Quarter: 2011Q4

REPORT INFORMATION
  Report Type: 
  Country: None (occurrence: None)
  Receive Date: 20111006
  Receipt Date: 20111006
  Transmission Date: 20120403
  Serious: Yes (Life-Threatening, Hospitalization)
  Sender: FDA-Public Use
  Company Number: None

PATIENT
  Age: 59 Year
  Sex: Male
  Weight: 145.3 kg

DRUGS (2)
  1. WARFARIN SODIUM [Suspect]
     Indication: ATRIAL FIBRILLATION
     Dates: start: 20110725, end: 20110731
  2. DALTEPARIN SODIUM [Suspect]
     Indication: ATRIAL FIBRILLATION
     Dosage: 12500 UNITS BID SQ
     Route: 058
     Dates: start: 20110726, end: 20110731

REACTIONS (2)
  - RETROPERITONEAL HAEMATOMA [None]
  - HAEMORRHAGE [None]
